FAERS Safety Report 5358232-4 (Version None)
Quarter: 2007Q2

REPORT INFORMATION
  Report Type: 
  Country: None (occurrence: None)
  Receive Date: 20070530
  Receipt Date: 20061117
  Transmission Date: 20071010
  Serious: Yes (Hospitalization)
  Sender: FDA-Public Use
  Company Number: US200603004252

PATIENT
  Age: 35 Year
  Sex: Male
  Weight: 111.1 kg

DRUGS (4)
  1. ZYPREXA [Suspect]
     Dosage: SEE IMAGE
     Dates: start: 19980501, end: 20050601
  2. ZYPREXA [Suspect]
     Dosage: SEE IMAGE
     Dates: start: 20050601, end: 20050801
  3. ZYPREXA [Suspect]
     Dosage: SEE IMAGE
     Dates: start: 20050801
  4. DIVALPROEX SODIUM [Concomitant]

REACTIONS (5)
  - BLOOD CHOLESTEROL ABNORMAL [None]
  - BLOOD TRIGLYCERIDES INCREASED [None]
  - DIABETES MELLITUS [None]
  - DIABETIC COMA [None]
  - POLYDIPSIA [None]
